FAERS Safety Report 21974733 (Version 1)
Quarter: 2023Q1

REPORT INFORMATION
  Report Type: Spontaneous
  Country: US (occurrence: None)
  Receive Date: 20230208
  Receipt Date: 20230208
  Transmission Date: 20230418
  Serious: Yes (Death)
  Sender: FDA-Public Use
  Company Number: None

PATIENT
  Age: 60 Year
  Sex: Male
  Weight: 67.4 kg

DRUGS (8)
  1. RAMUCIRUMAB [Suspect]
     Active Substance: RAMUCIRUMAB
     Indication: Oesophageal cancer metastatic
     Dosage: OTHER FREQUENCY : Q2W;?
     Route: 041
     Dates: start: 20230109, end: 20230109
  2. ABEMACICLIB [Suspect]
     Active Substance: ABEMACICLIB
     Indication: Oesophageal cancer metastatic
     Dosage: FREQUENCY : TWICE A DAY;?
     Route: 048
     Dates: start: 20230109, end: 20230121
  3. LEVOTHYROXINE [Concomitant]
     Active Substance: LEVOTHYROXINE
     Dates: start: 20221206, end: 20230128
  4. APIXABAN [Concomitant]
     Active Substance: APIXABAN
     Dates: start: 20221206, end: 20230128
  5. LOPERAMIDE [Concomitant]
     Active Substance: LOPERAMIDE
     Dates: start: 20230109, end: 20230128
  6. LEXAPRO [Concomitant]
     Active Substance: ESCITALOPRAM OXALATE
     Dates: start: 20220306, end: 20230128
  7. PREDNISONE [Concomitant]
     Active Substance: PREDNISONE
     Dates: start: 20221216, end: 20230125
  8. CODEINE PHOSPHATE\PROMETHAZINE [Concomitant]
     Active Substance: CODEINE PHOSPHATE\PROMETHAZINE
     Dates: start: 20221216, end: 20221226

REACTIONS (8)
  - Respiratory failure [None]
  - Septic shock [None]
  - Neutropenia [None]
  - Pneumonia [None]
  - Barotrauma [None]
  - Pneumomediastinum [None]
  - Renal failure [None]
  - Thrombocytopenia [None]

NARRATIVE: CASE EVENT DATE: 20230122
